FAERS Safety Report 14525292 (Version 1)
Quarter: 2018Q1

REPORT INFORMATION
  Report Type: Other
  Country: NL (occurrence: NL)
  Receive Date: 20180213
  Receipt Date: 20180213
  Transmission Date: 20180509
  Serious: Yes (Other)
  Sender: FDA-Public Use
  Company Number: NL-GLENMARK PHARMACEUTICALS-2017GMK031025

PATIENT

DRUGS (4)
  1. VORICONAZOL GLENMARK 200 MG, POEDER VOOR OPLOSSING VOOR INFUSIE [Suspect]
     Active Substance: VORICONAZOLE
     Dosage: 800 MG, UNK (2DD 300 MG)
     Route: 065
  2. VORICONAZOL GLENMARK 200 MG, POEDER VOOR OPLOSSING VOOR INFUSIE [Suspect]
     Active Substance: VORICONAZOLE
     Indication: SYSTEMIC MYCOSIS
     Dosage: 400 MG, UNK (CORRECTED)
     Route: 065
  3. VORICONAZOL GLENMARK 200 MG, POEDER VOOR OPLOSSING VOOR INFUSIE [Suspect]
     Active Substance: VORICONAZOLE
     Dosage: 200 MG, UNK (SYSTEMIC)
     Route: 065
  4. VORICONAZOL GLENMARK 200 MG, POEDER VOOR OPLOSSING VOOR INFUSIE [Suspect]
     Active Substance: VORICONAZOLE
     Dosage: 600 MG, UNK (2DD 300 MG)
     Route: 065

REACTIONS (7)
  - Hepatic function abnormal [Unknown]
  - Product use issue [Unknown]
  - Alanine aminotransferase increased [Unknown]
  - Drug level below therapeutic [Recovered/Resolved]
  - Gamma-glutamyltransferase increased [Unknown]
  - Aspartate aminotransferase increased [Unknown]
  - Intentional product use issue [Unknown]
